FAERS Safety Report 7806717-0 (Version None)
Quarter: 2011Q4

REPORT INFORMATION
  Report Type: 
  Country: None (occurrence: None)
  Receive Date: 20111011
  Receipt Date: 20111010
  Transmission Date: 20120403
  Serious: Yes (Death)
  Sender: FDA-Public Use
  Company Number: PHHY2011BR89071

PATIENT
  Sex: Female

DRUGS (5)
  1. DIGOXIN [Concomitant]
     Dosage: 0.5 DF, DAILY
  2. AMIODARONE HYDROCHLORIDE [Concomitant]
     Dosage: 1 DF, DAILY
  3. EXELON [Suspect]
     Indication: DEMENTIA ALZHEIMER'S TYPE
     Dosage: 9MG/5CM2 EVERY 24 HOURS
     Route: 062
     Dates: start: 20110701
  4. CARVEDILOL [Concomitant]
     Dosage: 1 DF, BID
  5. NITRENDIPINE [Concomitant]
     Dosage: 10 MG, QD

REACTIONS (1)
  - CARDIAC DISORDER [None]
